FAERS Safety Report 6755652-8 (Version None)
Quarter: 2010Q2

REPORT INFORMATION
  Report Type: 
  Country: None (occurrence: None)
  Receive Date: 20100604
  Receipt Date: 20100525
  Transmission Date: 20101027
  Serious: Yes (Hospitalization)
  Sender: FDA-Public Use
  Company Number: US-BAYER-200941142NA

PATIENT
  Age: 26 Year
  Sex: Female
  Weight: 113 kg

DRUGS (1)
  1. YASMIN [Suspect]
     Indication: CONTRACEPTION
     Route: 048
     Dates: start: 20050401, end: 20061125

REACTIONS (2)
  - MYOCARDIAL INFARCTION [None]
  - PAIN [None]
